FAERS Safety Report 22242416 (Version 1)
Quarter: 2023Q2

REPORT INFORMATION
  Report Type: Spontaneous
  Country: US (occurrence: US)
  Receive Date: 20230422
  Receipt Date: 20230422
  Transmission Date: 20230722
  Serious: Yes (Death)
  Sender: FDA-Public Use
  Company Number: US-drreddys-LIT/USA/23/0164017

PATIENT
  Age: 59 Year
  Sex: Male

DRUGS (2)
  1. DECITABINE [Suspect]
     Active Substance: DECITABINE
     Indication: Myelofibrosis
  2. VENETOCLAX [Suspect]
     Active Substance: VENETOCLAX
     Indication: Myelofibrosis

REACTIONS (3)
  - Death [Fatal]
  - Product use in unapproved indication [Unknown]
  - Therapeutic response unexpected [Unknown]
